FAERS Safety Report 17089079 (Version 1)
Quarter: 2019Q4

REPORT INFORMATION
  Report Type: Spontaneous
  Country: US (occurrence: US)
  Receive Date: 20191128
  Receipt Date: 20191128
  Transmission Date: 20200122
  Serious: No
  Sender: FDA-Public Use
  Company Number: US-TEVA-2019-US-1141258

PATIENT
  Sex: Female
  Weight: 63.5 kg

DRUGS (1)
  1. OXYBUTYNIN. [Suspect]
     Active Substance: OXYBUTYNIN CHLORIDE
     Indication: HYPERTONIC BLADDER
     Dates: end: 2019

REACTIONS (3)
  - Fall [Unknown]
  - Gait disturbance [Unknown]
  - Dizziness [Unknown]
